FAERS Safety Report 5934115-3 (Version None)
Quarter: 2008Q4

REPORT INFORMATION
  Report Type: 
  Country: None (occurrence: None)
  Receive Date: 20081027
  Receipt Date: 20081014
  Transmission Date: 20090506
  Serious: Yes (Life-Threatening, Hospitalization)
  Sender: FDA-Public Use
  Company Number: 237362J08USA

PATIENT
  Age: 22 Year
  Sex: Female
  Weight: 79.38 kg

DRUGS (4)
  1. REBIF [Suspect]
     Indication: MULTIPLE SCLEROSIS
     Dosage: 44 MCG, 3 IN 1 WEEKS, SUBCUTANEOUS; 44 MCG, 3 IN 1 WEEKS, SUBCUTANEOUS
     Route: 058
     Dates: start: 20080317, end: 20080730
  2. REBIF [Suspect]
     Indication: MULTIPLE SCLEROSIS
     Dosage: 44 MCG, 3 IN 1 WEEKS, SUBCUTANEOUS; 44 MCG, 3 IN 1 WEEKS, SUBCUTANEOUS
     Route: 058
     Dates: start: 20080213
  3. CONCERTA [Concomitant]
  4. ASPIRIN [Concomitant]

REACTIONS (9)
  - ASTHENIA [None]
  - CONDITION AGGRAVATED [None]
  - DYSPNOEA [None]
  - IMMOBILE [None]
  - INSOMNIA [None]
  - MASTICATION DISORDER [None]
  - MULTIPLE SCLEROSIS [None]
  - MYELITIS TRANSVERSE [None]
  - SENSORY DISTURBANCE [None]
